FAERS Safety Report 25131777 (Version 3)
Quarter: 2025Q4

REPORT INFORMATION
  Report Type: Spontaneous
  Country: CO (occurrence: CO)
  Receive Date: 20250327
  Receipt Date: 20251003
  Transmission Date: 20260117
  Serious: Yes (Other)
  Sender: BIOMARIN
  Company Number: CO-BIOMARINAP-CO-2025-162957

PATIENT
  Age: 10 Year
  Sex: Male
  Weight: 16 kg

DRUGS (2)
  1. VIMIZIM [Suspect]
     Active Substance: ELOSULFASE ALFA
     Indication: Mucopolysaccharidosis IV
     Dosage: 32 MILLIGRAM, QW
     Dates: start: 20221207
  2. ENALAPRIL [Concomitant]
     Active Substance: ENALAPRIL
     Indication: Product used for unknown indication

REACTIONS (3)
  - Angioedema [Recovering/Resolving]
  - Peripheral swelling [Recovering/Resolving]
  - Infusion site oedema [Recovering/Resolving]

NARRATIVE: CASE EVENT DATE: 20250103
